FAERS Safety Report 8840987 (Version 1)
Quarter: 2012Q4

REPORT INFORMATION
  Report Type: Report from Study
  Country: FR (occurrence: FR)
  Receive Date: 20121015
  Receipt Date: 20121015
  Transmission Date: 20130627
  Serious: Yes (Hospitalization, Other)
  Sender: FDA-Public Use
  Company Number: FR-ROCHE-1144476

PATIENT
  Age: 63 Year
  Sex: Female
  Weight: 63 kg

DRUGS (11)
  1. RITUXIMAB [Suspect]
     Indication: MALIGNANT LYMPHOID NEOPLASM
     Dosage: 640mg/cycle
     Route: 065
     Dates: start: 20120823
  2. RITUXIMAB [Suspect]
     Route: 065
     Dates: start: 20120913
  3. CISPLATIN [Suspect]
     Indication: MALIGNANT LYMPHOID NEOPLASM
     Dosage: 170 mg/cycle On D1 Cycle 1
     Route: 065
     Dates: start: 20120823
  4. CISPLATIN [Suspect]
     Dosage: Cycle 2 D1
     Route: 065
     Dates: start: 20120916
  5. ARACYTINE [Suspect]
     Indication: MALIGNANT LYMPHOID NEOPLASM
     Dosage: On D1 and D2 Cycle
     Route: 065
     Dates: start: 20120824
  6. ARACYTINE [Suspect]
     Route: 065
     Dates: start: 20120916
  7. DEXAMETHASONE SODIUM PHOSPHATE [Suspect]
     Indication: MALIGNANT LYMPHOID NEOPLASM
     Dosage: from D1 to D4 cycle
     Route: 065
     Dates: start: 20120823
  8. DEXAMETHASONE SODIUM PHOSPHATE [Suspect]
     Route: 065
     Dates: start: 20120916
  9. SEROPLEX [Concomitant]
     Indication: DEPRESSION
     Route: 065
     Dates: start: 1990
  10. ALDACTAZINE [Concomitant]
     Indication: HYPERTENSION
     Dosage: 1 tablet/D
     Route: 065
  11. LERCAN [Concomitant]
     Indication: HYPERTENSION
     Route: 065

REACTIONS (1)
  - Syncope [Recovered/Resolved]
